FAERS Safety Report 18370877 (Version 1)
Quarter: 2020Q4

REPORT INFORMATION
  Report Type: Report from Study
  Country: None (occurrence: NZ)
  Receive Date: 20201012
  Receipt Date: 20201012
  Transmission Date: 20210114
  Serious: Yes (Other)
  Sender: FDA-Public Use
  Company Number: NZ-MDD US OPERATIONS-USW201908-001538

PATIENT
  Age: 65 Year
  Sex: Male

DRUGS (1)
  1. APOMORPHINE HYDROCHLORIDE [Suspect]
     Active Substance: APOMORPHINE HYDROCHLORIDE
     Indication: PRODUCT USED FOR UNKNOWN INDICATION
     Dosage: NOT PROVIDED
     Route: 058

REACTIONS (4)
  - Product administration error [Unknown]
  - Needle issue [Unknown]
  - Abdominal abscess [Unknown]
  - Application site bruise [Unknown]

NARRATIVE: CASE EVENT DATE: 2020
